FAERS Safety Report 15840185 (Version 3)
Quarter: 2020Q3

REPORT INFORMATION
  Report Type: Spontaneous
  Country: US (occurrence: US)
  Receive Date: 20190117
  Receipt Date: 20200707
  Transmission Date: 20201102
  Serious: Yes (Death, Hospitalization, Other)
  Sender: FDA-Public Use
  Company Number: US-BRISTOL-MYERS SQUIBB COMPANY-BMS-2019-002358

PATIENT
  Sex: Male
  Weight: 83.91 kg

DRUGS (1)
  1. OPDIVO [Suspect]
     Active Substance: NIVOLUMAB
     Indication: SMALL CELL LUNG CANCER
     Dosage: EVERY 28 DAYS
     Route: 042
     Dates: start: 20181228

REACTIONS (3)
  - Intentional product use issue [Unknown]
  - Gait disturbance [Unknown]
  - Death [Fatal]
